FAERS Safety Report 4369060-0 (Version None)
Quarter: 2004Q2

REPORT INFORMATION
  Report Type: 
  Country: None (occurrence: None)
  Receive Date: 20040527
  Receipt Date: 20040504
  Transmission Date: 20050107
  Serious: Yes (Death)
  Sender: FDA-Public Use
  Company Number: A03200401418

PATIENT
  Age: 76 Year
  Sex: Female

DRUGS (1)
  1. UROXATRAL [Suspect]
     Indication: POLLAKIURIA
     Dosage: 10 MG ONCE - ORAL
     Route: 048
     Dates: start: 20040414, end: 20040414

REACTIONS (1)
  - CEREBROVASCULAR ACCIDENT [None]
